FAERS Safety Report 5928962-1 (Version None)
Quarter: 2008Q3

REPORT INFORMATION
  Report Type: 
  Country: None (occurrence: None)
  Receive Date: 20080924
  Receipt Date: 20080714
  Transmission Date: 20090109
  Serious: Yes (Other)
  Sender: FDA-Public Use
  Company Number: PHEH2006US08854

PATIENT
  Age: 61 Year
  Sex: Female
  Weight: 95.2 kg

DRUGS (6)
  1. COMBIPATCH [Suspect]
     Indication: MENOPAUSE
     Dosage: 0.5/0.25 MG, TRANSDERMAL
     Route: 062
     Dates: start: 20010124, end: 20050103
  2. PREMPRO [Suspect]
     Indication: MENOPAUSE
     Dosage: ORAL
     Route: 048
     Dates: start: 19980101, end: 20001201
  3. PREMARIN [Suspect]
     Indication: MENOPAUSE
     Dosage: ORAL
     Route: 048
     Dates: start: 19950101, end: 19971201
  4. PROVERA [Suspect]
     Indication: MENOPAUSE
     Dosage: ORAL
     Route: 048
     Dates: start: 19950101, end: 19971201
  5. ATENOLOL [Concomitant]
  6. LIPITOR [Concomitant]

REACTIONS (18)
  - BREAST CALCIFICATIONS [None]
  - BREAST CANCER [None]
  - BREAST CYST [None]
  - BREAST DISORDER [None]
  - BREAST FIBROSIS [None]
  - BREAST HAEMORRHAGE [None]
  - BREAST INFLAMMATION [None]
  - BREAST MASS [None]
  - BREAST OPERATION [None]
  - BURNING SENSATION [None]
  - FIBROCYSTIC BREAST DISEASE [None]
  - LYMPHADENECTOMY [None]
  - NUCLEAR MAGNETIC RESONANCE IMAGING ABNORMAL [None]
  - PARAESTHESIA [None]
  - PERIVASCULAR DERMATITIS [None]
  - RADIATION SKIN INJURY [None]
  - RADIOTHERAPY [None]
  - RASH [None]
